FAERS Safety Report 4632329-6 (Version None)
Quarter: 2005Q2

REPORT INFORMATION
  Report Type: 
  Country: None (occurrence: None)
  Receive Date: 20050411
  Receipt Date: 20050224
  Transmission Date: 20051028
  Serious: Yes (Hospitalization)
  Sender: FDA-Public Use
  Company Number: PHFR2005GB01028

PATIENT
  Age: 60 Year
  Sex: Female

DRUGS (10)
  1. CLOZARIL [Suspect]
     Indication: MEDICATION ERROR
     Dosage: 250 MG, ONCE/SINGLE
     Route: 048
     Dates: start: 20050219
  2. PROCYCLIDINE HYDROCHLORIDE 2MG TAB [Concomitant]
     Indication: ANTICHOLINERGIC SYNDROME
     Dosage: 5 G, TID
     Route: 048
  3. OXYBUTYNIN [Concomitant]
     Indication: URINARY INCONTINENCE
     Dosage: 5 MG, BID
  4. TRIMETHOPRIM [Concomitant]
     Indication: URINARY TRACT INFECTION
     Dosage: 100 MG, UNK
     Route: 048
  5. VALPROATE SODIUM [Concomitant]
     Indication: EPILEPSY
     Route: 048
  6. SERTRALINE HCL [Concomitant]
     Indication: DEPRESSION
  7. PROMAZINE HCL [Concomitant]
     Indication: SEDATION
     Route: 048
  8. QUININE SULPHATE [Concomitant]
     Indication: NIGHT CRAMPS
     Route: 048
  9. CLOPIXOL                           /00876701/ [Concomitant]
     Route: 030
  10. HYOSCINE HYDROBROMIDE [Concomitant]

REACTIONS (4)
  - ACCIDENTAL EXPOSURE [None]
  - DYSPNOEA [None]
  - HYPERSENSITIVITY [None]
  - SWELLING FACE [None]
